FAERS Safety Report 16911321 (Version 1)
Quarter: 2019Q4

REPORT INFORMATION
  Report Type: Spontaneous
  Country: US (occurrence: US)
  Receive Date: 20190821
  Receipt Date: 20190821
  Transmission Date: 20200122
  Serious: No
  Sender: FDA-Public Use
  Company Number: None

PATIENT
  Sex: Male

DRUGS (2)
  1. TRUVADA [Suspect]
     Active Substance: EMTRICITABINE\TENOFOVIR DISOPROXIL FUMARATE
     Indication: DEPRESSION
     Route: 048
     Dates: start: 20190404
  2. TRUVADA [Suspect]
     Active Substance: EMTRICITABINE\TENOFOVIR DISOPROXIL FUMARATE
     Indication: CONJUNCTIVITIS ALLERGIC
     Route: 048
     Dates: start: 20190404

REACTIONS (3)
  - Conjunctivitis allergic [None]
  - Depression [None]
  - Exposure to communicable disease [None]
